FAERS Safety Report 17913023 (Version 2)
Quarter: 2020Q3

REPORT INFORMATION
  Report Type: Spontaneous
  Country: DE (occurrence: DE)
  Receive Date: 20200618
  Receipt Date: 20200729
  Transmission Date: 20201103
  Serious: Yes (Other)
  Sender: FDA-Public Use
  Company Number: NVSC2020DE120983

PATIENT
  Sex: Male
  Weight: 130 kg

DRUGS (23)
  1. CANDESARTAN. [Suspect]
     Active Substance: CANDESARTAN
     Dosage: UNK
     Route: 065
     Dates: start: 201905, end: 201911
  2. VALSARTAN DURA [Suspect]
     Active Substance: VALSARTAN
     Dosage: 80 MG, QD
     Route: 065
     Dates: start: 201902, end: 201905
  3. RIVAROXABAN [Concomitant]
     Active Substance: RIVAROXABAN
     Indication: ANTICOAGULANT THERAPY
     Dosage: UNK UNK, QD(1?0?0?0)
     Route: 065
  4. RIVAROXABAN [Concomitant]
     Active Substance: RIVAROXABAN
     Indication: BLOOD COUNT ABNORMAL
  5. PANTOPRAZOL [Concomitant]
     Active Substance: PANTOPRAZOLE SODIUM
     Indication: GASTROINTESTINAL DISORDER
     Dosage: UNK UNK, QD(1?0?0?0 AS NEEDED)
     Route: 065
  6. METFORMIN HYDROCHLORIDE. [Concomitant]
     Active Substance: METFORMIN HYDROCHLORIDE
     Indication: BLOOD GLUCOSE ABNORMAL
     Dosage: UNK, BID(1?0?1?0)
     Route: 065
  7. PROMETHAZINE [Concomitant]
     Active Substance: PROMETHAZINE HYDROCHLORIDE
     Indication: FEAR OF DISEASE
  8. VALSARTAN HEUMANN [Suspect]
     Active Substance: VALSARTAN
     Indication: PRODUCT USED FOR UNKNOWN INDICATION
     Dosage: 80 MG, QD
     Route: 065
     Dates: start: 201710, end: 201801
  9. ATORVASTATIN [Concomitant]
     Active Substance: ATORVASTATIN
     Indication: LIPIDS ABNORMAL
     Dosage: UNK(0?0?0.5?0)
     Route: 065
  10. METAMIZOL NATRIUM [Concomitant]
     Active Substance: METAMIZOLE SODIUM
     Indication: PAIN
     Dosage: UNK, PRN(AS NEEDED)
     Route: 065
  11. MILNANEURAX [Concomitant]
     Active Substance: MILNACIPRAN HYDROCHLORIDE
     Indication: FEAR OF DISEASE
  12. CANDESARTAN ? 1 A PHARMA [Suspect]
     Active Substance: CANDESARTAN
     Indication: PRODUCT USED FOR UNKNOWN INDICATION
     Dosage: 32 MG, UNKNOWN
     Route: 065
     Dates: start: 201902, end: 201905
  13. CANDESARTAN HEXAL 32 MG TABLETTEN [Suspect]
     Active Substance: CANDESARTAN CILEXETIL
     Indication: PRODUCT USED FOR UNKNOWN INDICATION
     Dosage: 32 MG, UNKNOWN
     Route: 065
     Dates: start: 201905, end: 201911
  14. CANDESARTAN. [Suspect]
     Active Substance: CANDESARTAN
     Indication: PRODUCT USED FOR UNKNOWN INDICATION
     Dosage: UNK
     Route: 065
     Dates: start: 201902, end: 201905
  15. VALSARTAN. [Suspect]
     Active Substance: VALSARTAN
     Indication: PRODUCT USED FOR UNKNOWN INDICATION
     Dosage: 80 MG, QD
     Route: 065
     Dates: start: 201710, end: 201801
  16. VALSARTAN DURA [Suspect]
     Active Substance: VALSARTAN
     Indication: PRODUCT USED FOR UNKNOWN INDICATION
     Dosage: 80 MG, QD
     Route: 065
     Dates: start: 20160818, end: 201710
  17. PROMETHAZINE [Concomitant]
     Active Substance: PROMETHAZINE HYDROCHLORIDE
     Indication: DEPRESSION
     Dosage: 25 MG
     Route: 065
  18. CANDESARTAN CILEXETIL MYLAN [Suspect]
     Active Substance: CANDESARTAN CILEXETIL
     Indication: PRODUCT USED FOR UNKNOWN INDICATION
     Dosage: 32 MG, UNKNOWN
     Route: 065
     Dates: start: 201911
  19. MILNANEURAX [Concomitant]
     Active Substance: MILNACIPRAN HYDROCHLORIDE
     Indication: DEPRESSION
     Dosage: 50 MG
     Route: 065
  20. CANDESARTAN CILEXETIL. [Concomitant]
     Active Substance: CANDESARTAN CILEXETIL
     Indication: BLOOD PRESSURE ABNORMAL
     Dosage: UNK, QD(1?0?0?0)
     Route: 065
  21. VALSARTAN DURA [Suspect]
     Active Substance: VALSARTAN
     Dosage: 80 MG, QD
     Route: 065
     Dates: start: 201801, end: 20190208
  22. LEVOTHYROXINUM NATRICUM [Concomitant]
     Indication: THYROID DISORDER
     Dosage: UNK UNK, QD(1?0?0?0)
     Route: 065
  23. ALLOPURINOL. [Concomitant]
     Active Substance: ALLOPURINOL
     Indication: BLOOD URIC ACID ABNORMAL
     Dosage: UNK UNK, QD(0?0?0?1)
     Route: 065

REACTIONS (20)
  - Panic attack [Unknown]
  - Gastrointestinal disorder [Unknown]
  - Nervousness [Unknown]
  - Loss of personal independence in daily activities [Unknown]
  - Restlessness [Unknown]
  - Vomiting [Unknown]
  - Mental impairment [Unknown]
  - Tremor [Unknown]
  - Chest discomfort [Unknown]
  - Chest pain [Unknown]
  - Fatigue [Unknown]
  - Insomnia [Unknown]
  - Cerebrovascular accident [Unknown]
  - Depression [Unknown]
  - Atrial fibrillation [Unknown]
  - Fear of disease [Unknown]
  - Disturbance in attention [Unknown]
  - Hyperhidrosis [Unknown]
  - Dizziness [Unknown]
  - Nausea [Unknown]
